FAERS Safety Report 8009314-X (Version None)
Quarter: 2011Q4

REPORT INFORMATION
  Report Type: 
  Country: None (occurrence: None)
  Receive Date: 20111221
  Receipt Date: 20111212
  Transmission Date: 20120403
  Serious: Yes (Hospitalization)
  Sender: FDA-Public Use
  Company Number: DSM-2011-00868

PATIENT
  Age: 62 Year
  Sex: Female

DRUGS (4)
  1. CALTRATE (CALCIUM CARBONATE) (CALCIUM CARBONATE) [Concomitant]
  2. OLMESARTAN MEDOXOMIL [Suspect]
     Indication: HYPERTENSION
     Dosage: 10 MG, ORAL, 10 MG, ORAL
     Route: 048
     Dates: start: 20080825
  3. CRESTOR [Concomitant]
  4. NEXIUM (ESOMEPRAZOLE SODIUM) (ESOMEPRAZOLE SODIUM) [Concomitant]

REACTIONS (5)
  - HEADACHE [None]
  - BLOOD PRESSURE FLUCTUATION [None]
  - CAROTID ARTERY OCCLUSION [None]
  - PRESYNCOPE [None]
  - CIRCULATORY COLLAPSE [None]
